FAERS Safety Report 4508076-8 (Version None)
Quarter: 2004Q4

REPORT INFORMATION
  Report Type: 
  Country: None (occurrence: None)
  Receive Date: 20041123
  Receipt Date: 20031008
  Transmission Date: 20050328
  Serious: No
  Sender: FDA-Public Use
  Company Number: US-GLAXOSMITHKLINE-A0429512A

PATIENT
  Sex: Male

DRUGS (5)
  1. WELLBUTRIN [Suspect]
     Indication: ILL-DEFINED DISORDER
     Dosage: 150MG TWICE PER DAY
     Route: 048
  2. ZOLOFT [Concomitant]
  3. FENTANYL [Concomitant]
  4. EXCEDRIN (MIGRAINE) [Concomitant]
  5. DIAZEPAM [Concomitant]

REACTIONS (1)
  - ABDOMINAL PAIN UPPER [None]
